FAERS Safety Report 19532755 (Version 1)
Quarter: 2021Q3

REPORT INFORMATION
  Report Type: Spontaneous
  Country: NL (occurrence: NL)
  Receive Date: 20210713
  Receipt Date: 20210713
  Transmission Date: 20211014
  Serious: Yes (Disabling)
  Sender: FDA-Public Use
  Company Number: NL-TEVA-2021-NL-1931608

PATIENT
  Age: 37 Year
  Sex: Female
  Weight: 67 kg

DRUGS (2)
  1. CARBAMAZEPINE TABLET MGA 200MG / TEGRETOL CR TABLET MGA 200MG [Concomitant]
     Dosage: 1000 MILLIGRAM DAILY; 500 MG RETARD TWICE A DAYTHERAPY START DATE:THERAPY END DATE :ASKU
  2. AZITROMYCINE TABLET 500MG / BRAND NAME NOT SPECIFIED [Suspect]
     Active Substance: AZITHROMYCIN
     Indication: PRODUCT USED FOR UNKNOWN INDICATION
     Dosage: 500 MILLIGRAM DAILY; 500 MG ONCE A DAYTHERAPY END DATE :ASKU
     Dates: start: 20210611

REACTIONS (1)
  - Generalised tonic-clonic seizure [Recovered/Resolved]

NARRATIVE: CASE EVENT DATE: 20210611
